FAERS Safety Report 5158501-7 (Version None)
Quarter: 2006Q4

REPORT INFORMATION
  Report Type: 
  Country: None (occurrence: None)
  Receive Date: 20061128
  Receipt Date: 20061122
  Transmission Date: 20070319
  Serious: Yes (Hospitalization, Other)
  Sender: FDA-Public Use
  Company Number: 2006AC02192

PATIENT
  Age: 89 Year
  Sex: Female

DRUGS (3)
  1. ANASTRAZOLE [Suspect]
     Indication: BREAST CANCER
     Route: 048
  2. HYDROSALURIC [Concomitant]
     Indication: HYPERTENSION
  3. TOLTERODINE [Concomitant]
     Indication: URINARY INCONTINENCE

REACTIONS (2)
  - HEPATOTOXICITY [None]
  - MIXED HEPATOCELLULAR-CHOLESTATIC INJURY [None]
